FAERS Safety Report 14482399 (Version 5)
Quarter: 2018Q2

REPORT INFORMATION
  Report Type: Report from Study
  Country: DE (occurrence: DE)
  Receive Date: 20180202
  Receipt Date: 20180528
  Transmission Date: 20180711
  Serious: Yes (Hospitalization, Other)
  Sender: FDA-Public Use
  Company Number: DE-BIOGEN-2018BI00518001

PATIENT
  Age: 59 Year
  Sex: Female
  Weight: 47 kg

DRUGS (4)
  1. TYSABRI [Suspect]
     Active Substance: NATALIZUMAB
     Route: 065
  2. TYSABRI [Suspect]
     Active Substance: NATALIZUMAB
     Indication: MULTIPLE SCLEROSIS
     Route: 042
     Dates: start: 20070213
  3. FAMPYRA [Suspect]
     Active Substance: DALFAMPRIDINE
     Indication: GAIT DISTURBANCE
     Route: 048
     Dates: start: 20120502
  4. TYSABRI [Suspect]
     Active Substance: NATALIZUMAB
     Route: 065
     Dates: end: 20180205

REACTIONS (4)
  - Post procedural urine leak [Recovered/Resolved with Sequelae]
  - Bladder injury [Recovered/Resolved with Sequelae]
  - Cervix carcinoma [Recovered/Resolved]
  - Procedural complication [Recovered/Resolved with Sequelae]

NARRATIVE: CASE EVENT DATE: 20171109
